FAERS Safety Report 8302297-4 (Version None)
Quarter: 2012Q2

REPORT INFORMATION
  Report Type: 
  Country: None (occurrence: None)
  Receive Date: 20120420
  Receipt Date: 20120416
  Transmission Date: 20120825
  Serious: Yes (Other)
  Sender: FDA-Public Use
  Company Number: US-BAYER-2012-005482

PATIENT
  Age: 31 Year
  Sex: Female

DRUGS (3)
  1. BETASERON [Suspect]
     Indication: RELAPSING-REMITTING MULTIPLE SCLEROSIS
     Dosage: 2 MIU, QOD
     Route: 058
     Dates: start: 20120111
  2. BETASERON [Suspect]
     Dosage: 0.3 MG, UNK
     Route: 058
  3. IBUPROFEN [Concomitant]
     Indication: PREMEDICATION

REACTIONS (1)
  - HAEMATOCHEZIA [None]
